FAERS Safety Report 19285366 (Version 1)
Quarter: 2021Q2

REPORT INFORMATION
  Report Type: Spontaneous
  Country: US (occurrence: US)
  Receive Date: 20210521
  Receipt Date: 20210521
  Transmission Date: 20210717
  Serious: Yes (Hospitalization)
  Sender: FDA-Public Use
  Company Number: US-MYLANLABS-2021M1029514

PATIENT
  Age: 65 Year
  Sex: Female

DRUGS (3)
  1. ATENOLOL. [Concomitant]
     Active Substance: ATENOLOL
     Indication: HYPERTENSION
     Route: 065
  2. CHLORTALIDONE [Suspect]
     Active Substance: CHLORTHALIDONE
     Indication: HYPERTENSION
     Route: 065
  3. LISINOPRIL. [Concomitant]
     Active Substance: LISINOPRIL
     Indication: HYPERTENSION
     Route: 065

REACTIONS (8)
  - Angle closure glaucoma [Recovering/Resolving]
  - Hyponatraemia [Recovering/Resolving]
  - Eye opacity [Unknown]
  - Hypophagia [Unknown]
  - Cataract [Unknown]
  - Iris adhesions [Unknown]
  - Condition aggravated [Unknown]
  - Hypovolaemia [Unknown]
